FAERS Safety Report 5306800-8 (Version None)
Quarter: 2007Q2

REPORT INFORMATION
  Report Type: 
  Country: None (occurrence: None)
  Receive Date: 20070423
  Receipt Date: 20070423
  Transmission Date: 20071010
  Serious: Yes (Life-Threatening, Disabling, Other)
  Sender: FDA-Public Use
  Company Number: None

PATIENT
  Age: 50 Year
  Sex: Female

DRUGS (2)
  1. GM-CSF [Suspect]
     Dates: start: 20060101, end: 20060101
  2. PLACEBO [Concomitant]

REACTIONS (4)
  - INJECTION SITE INFLAMMATION [None]
  - INJECTION SITE SWELLING [None]
  - LYMPH NODE CANCER METASTATIC [None]
  - NON-HODGKIN'S LYMPHOMA [None]
